FAERS Safety Report 9563427 (Version 1)
Quarter: 2013Q1

REPORT INFORMATION
  Report Type: Spontaneous
  Country: US (occurrence: None)
  Receive Date: 20121227
  Receipt Date: 20121227
  Transmission Date: 20140127
  Serious: Yes (Other)
  Sender: FDA-Public Use
  Company Number: PHEH2011US08361

PATIENT
  Age: 69 Year
  Sex: Female
  Weight: 73.5 kg

DRUGS (3)
  1. EXJADE (*CGP 72670*) UNKNOWN [Suspect]
     Indication: IRON OVERLOAD
     Route: 048
     Dates: start: 20090106, end: 201107
  2. VITAMIN C [Concomitant]
  3. CALCIUM AND ERGOCALCIFEROL (CALCIUM LACTATE, CALCIUM PHOSPHATE, ERGOCALCIFEROL) [Concomitant]

REACTIONS (5)
  - Platelet count decreased [None]
  - Gastrointestinal disorder [None]
  - Diarrhoea infectious [None]
  - Serum ferritin increased [None]
  - Diarrhoea [None]
